FAERS Safety Report 12300927 (Version 2)
Quarter: 2016Q2

REPORT INFORMATION
  Report Type: Spontaneous
  Country: RU (occurrence: RU)
  Receive Date: 20160425
  Receipt Date: 20160428
  Transmission Date: 20160815
  Serious: Yes (Other)
  Sender: FDA-Public Use
  Company Number: RU-BAYER-2016-076854

PATIENT
  Age: 34 Year
  Sex: Female

DRUGS (2)
  1. YAZ [Suspect]
     Active Substance: DROSPIRENONE\ETHINYL ESTRADIOL
     Indication: CONTRACEPTION
     Dosage: UNK
     Route: 048
     Dates: start: 201408, end: 201601
  2. QLAIRA [Suspect]
     Active Substance: DIENOGEST\ESTRADIOL VALERATE
     Dosage: UNK
     Route: 048
     Dates: start: 201602

REACTIONS (2)
  - Metrorrhagia [None]
  - Uterine polyp [Recovered/Resolved]

NARRATIVE: CASE EVENT DATE: 2016
